FAERS Safety Report 13736043 (Version 1)
Quarter: 2017Q3

REPORT INFORMATION
  Report Type: Spontaneous
  Country: US (occurrence: US)
  Receive Date: 20170707
  Receipt Date: 20170707
  Transmission Date: 20171127
  Serious: No
  Sender: FDA-Public Use
  Company Number: None

PATIENT
  Age: 30 Year
  Sex: Female
  Weight: 99.79 kg

DRUGS (1)
  1. LUPRON DEPOT [Suspect]
     Active Substance: LEUPROLIDE ACETATE
     Indication: ENDOMETRIOSIS
     Route: 030
     Dates: start: 20170428

REACTIONS (5)
  - Insomnia [None]
  - Night sweats [None]
  - Hot flush [None]
  - Abdominal pain lower [None]
  - Headache [None]

NARRATIVE: CASE EVENT DATE: 20170706
